FAERS Safety Report 9393950 (Version 1)
Quarter: 2013Q3

REPORT INFORMATION
  Report Type: Spontaneous
  Country: DE (occurrence: None)
  Receive Date: 20130705
  Receipt Date: 20130705
  Transmission Date: 20140515
  Serious: No
  Sender: FDA-Public Use
  Company Number: TPA2013A06246

PATIENT
  Age: 91 Year
  Sex: Female

DRUGS (4)
  1. ADENURIC (FEBUXOSTAT) [Suspect]
     Indication: GOUT
     Dosage: 80 MG, 1 IN 1 D
     Route: 048
     Dates: start: 20130319, end: 20130505
  2. ISOPTIN KHK (VERAPAMIL HYDROCHLORIDE) [Concomitant]
  3. TOREM (TORASEMIDE) [Concomitant]
  4. OXYMEDIN (OXYBUTYNIN HYDROCHLORIDE) [Concomitant]

REACTIONS (4)
  - Rash generalised [None]
  - Rash papular [None]
  - Urticaria [None]
  - Rash generalised [None]
